FAERS Safety Report 6330587-3 (Version None)
Quarter: 2009Q3

REPORT INFORMATION
  Report Type: 
  Country: None (occurrence: None)
  Receive Date: 20090827
  Receipt Date: 20090824
  Transmission Date: 20100115
  Serious: Yes (Death)
  Sender: FDA-Public Use
  Company Number: GB-WYE-G04298309

PATIENT
  Sex: Female

DRUGS (3)
  1. IBUPROFEN [Suspect]
     Dosage: UNKNOWN
  2. SIMVASTATIN [Suspect]
     Dosage: DOSE STRENGTH UNKNOWN, 66 TABLETS AT ONCE
     Route: 048
  3. ASPIRIN [Suspect]
     Dosage: UNKNOWN

REACTIONS (2)
  - COMPLETED SUICIDE [None]
  - INTENTIONAL OVERDOSE [None]
